FAERS Safety Report 15430098 (Version 1)
Quarter: 2018Q3

REPORT INFORMATION
  Report Type: Spontaneous
  Country: US (occurrence: US)
  Receive Date: 20180920
  Receipt Date: 20180920
  Transmission Date: 20181010
  Serious: No
  Sender: FDA-Public Use
  Company Number: None

PATIENT
  Age: 70 Year
  Sex: Male

DRUGS (1)
  1. ERLEADA [Suspect]
     Active Substance: APALUTAMIDE
     Route: 048
     Dates: start: 20180410

REACTIONS (4)
  - Weight decreased [None]
  - Decreased appetite [None]
  - Alopecia [None]
  - Constipation [None]

NARRATIVE: CASE EVENT DATE: 20180919
